FAERS Safety Report 20112852 (Version 1)
Quarter: 2021Q4

REPORT INFORMATION
  Report Type: Report from Study
  Country: US (occurrence: None)
  Receive Date: 20211125
  Receipt Date: 20211125
  Transmission Date: 20220303
  Serious: Yes (Other)
  Sender: FDA-Public Use
  Company Number: US-ROCHE-2959645

PATIENT
  Age: 75 Year
  Sex: Male

DRUGS (3)
  1. ATEZOLIZUMAB [Suspect]
     Active Substance: ATEZOLIZUMAB
     Indication: Adenocarcinoma pancreas
     Dosage: WHICH WAS ALSO THE LAST DOSE ADMINISTERED.
     Route: 041
     Dates: start: 20210121
  2. AUTOGENE CEVUMERAN [Suspect]
     Active Substance: AUTOGENE CEVUMERAN
     Indication: Adenocarcinoma pancreas
     Dosage: ON 06/APR/2021, THE LAST DOSE OF AUTOGENE CEVUMERAN ADMINISTERED.
     Route: 065
     Dates: start: 20210121
  3. FLUOROURACIL\IRINOTECAN\LEUCOVORIN\OXALIPLATIN [Suspect]
     Active Substance: FLUOROURACIL\IRINOTECAN\LEUCOVORIN\OXALIPLATIN
     Indication: Adenocarcinoma pancreas
     Dosage: ON 29/JUN/2021, LAST DOSE OF MFOFIRINOX WAS ADMINISTERED.
     Route: 065

REACTIONS (1)
  - Skin ulcer [Recovering/Resolving]

NARRATIVE: CASE EVENT DATE: 20210819
